FAERS Safety Report 17241807 (Version 1)
Quarter: 2019Q4

REPORT INFORMATION
  Report Type: Spontaneous
  Country: US (occurrence: US)
  Receive Date: 20191212
  Receipt Date: 20191212
  Transmission Date: 20200122
  Serious: No
  Sender: FDA-Public Use
  Company Number: None

PATIENT
  Age: 26 Year
  Sex: Female

DRUGS (1)
  1. GLATIRAMER 40MG PFS INJ (12/BOX) [Suspect]
     Active Substance: GLATIRAMER
     Route: 058
     Dates: start: 201910, end: 201910

REACTIONS (7)
  - Panic attack [None]
  - Influenza like illness [None]
  - Myalgia [None]
  - Injection site inflammation [None]
  - Chills [None]
  - Therapy cessation [None]
  - Injection site mass [None]

NARRATIVE: CASE EVENT DATE: 20191212
